FAERS Safety Report 12638403 (Version 2)
Quarter: 2016Q4

REPORT INFORMATION
  Report Type: Spontaneous
  Country: US (occurrence: US)
  Receive Date: 20160809
  Receipt Date: 20161108
  Transmission Date: 20170207
  Serious: No
  Sender: FDA-Public Use
  Company Number: US-SA-2016SA108818

PATIENT
  Age: 72 Year
  Sex: Male
  Weight: 90.7 kg

DRUGS (13)
  1. PLAVIX [Concomitant]
     Active Substance: CLOPIDOGREL BISULFATE
     Dosage: INSTRUCTIONS: TAKE 1 TABLET BY MOUTH DAILY
     Dates: start: 201605
  2. ASPIRIN (E.C.) [Concomitant]
     Active Substance: ASPIRIN
     Dates: start: 201109
  3. GLUCOSAMINE SULFATE [Concomitant]
     Active Substance: GLUCOSAMINE SULFATE
     Dosage: STRENGTH: 75 MG;INSTRUCTIONS: TAKE 750 MG BY MOUTH 2 TIMES DAILY
     Dates: start: 200710
  4. EFFIENT [Concomitant]
     Active Substance: PRASUGREL HYDROCHLORIDE
     Dosage: STRENGTH: 10 MG; INSTRUCTIONS: TAKE 1 TABLET BY MOUTH DAILY.
     Dates: start: 201508
  5. PRALUENT [Suspect]
     Active Substance: ALIROCUMAB
     Indication: BLOOD CHOLESTEROL INCREASED
     Route: 065
     Dates: start: 20160116, end: 20160521
  6. ALIROCUMAB PREFILLED PEN [Concomitant]
     Active Substance: ALIROCUMAB
     Dates: start: 20151221, end: 20160521
  7. SINGULAIR [Concomitant]
     Active Substance: MONTELUKAST SODIUM
     Dosage: STRENGTH: 10 MG; INSTRUCTIONS: TAKE 10 MG BY MOUTH DAILY
     Dates: start: 200703
  8. PROSTAGLANDIN E1 [Concomitant]
     Active Substance: ALPROSTADIL
     Dosage: INSTRUCTIONS: BY DOES NOT APPLY ROUTE.
  9. NEURONTIN [Concomitant]
     Active Substance: GABAPENTIN
     Dosage: INSTRUCTIONS: TAKE 600 MG BY MOUTH 3 TIMES DAILY
  10. CHONDROITIN SULFATE [Concomitant]
     Active Substance: SODIUM CHONDROITIN SULFATE
     Dosage: STRENGTH: 400 MG; INSTRUCTIONS: TAKE 400 MG BY MOUTH 2 TIMES DAILY
     Dates: start: 200710
  11. FISH OIL [Concomitant]
     Active Substance: FISH OIL
     Dosage: INSTRUCTIONS: BY DOES NOT APPLY ROUTE DAILY
  12. NORVASC [Concomitant]
     Active Substance: AMLODIPINE BESYLATE
     Dosage: STRENGTH: 10 MG; INSTRUCTIONS: TAKE 1 TABLET DAILY
     Dates: start: 201602
  13. SPIRIVA [Concomitant]
     Active Substance: TIOTROPIUM BROMIDE MONOHYDRATE
     Dosage: STRENGTH: 18 MCG; INSTRUCTIONS: INHALE 18 MCG INTO THE LUNGS AS NEEDED

REACTIONS (5)
  - Mobility decreased [Unknown]
  - Asthenia [Unknown]
  - Myalgia [Recovering/Resolving]
  - Arthralgia [Recovering/Resolving]
  - Gait disturbance [Recovering/Resolving]

NARRATIVE: CASE EVENT DATE: 201605
